FAERS Safety Report 23732267 (Version 1)
Quarter: 2024Q2

REPORT INFORMATION
  Report Type: Spontaneous
  Country: GB (occurrence: GB)
  Receive Date: 20240411
  Receipt Date: 20240411
  Transmission Date: 20240716
  Serious: Yes (Hospitalization)
  Sender: FDA-Public Use
  Company Number: GB-PFIZER INC-PV202400029403

PATIENT
  Age: 54 Year
  Sex: Female
  Weight: 58.05 kg

DRUGS (6)
  1. XELJANZ [Suspect]
     Active Substance: TOFACITINIB CITRATE
     Indication: Rheumatoid arthritis
     Dosage: 5 MG, 2X/DAY
     Route: 048
     Dates: end: 2017
  2. CITALOPRAM [Concomitant]
     Active Substance: CITALOPRAM\CITALOPRAM HYDROBROMIDE
     Dosage: 30 MG
     Dates: start: 2014
  3. OMEPRAZOLE [Concomitant]
     Active Substance: OMEPRAZOLE
     Dosage: 20 MG
  4. ACETAMINOPHEN [Concomitant]
     Active Substance: ACETAMINOPHEN
     Dosage: UNK
  5. BUTRANS [Concomitant]
     Active Substance: BUPRENORPHINE
     Dosage: 20 MG
  6. THIAMINE [Concomitant]
     Active Substance: THIAMINE
     Dosage: UNK

REACTIONS (2)
  - Cellulitis [Recovered/Resolved]
  - Joint arthroplasty [Recovered/Resolved]

NARRATIVE: CASE EVENT DATE: 20170101
